FAERS Safety Report 16999959 (Version 4)
Quarter: 2020Q2

REPORT INFORMATION
  Report Type: Report from Study
  Country: JP (occurrence: JP)
  Receive Date: 20191106
  Receipt Date: 20200520
  Transmission Date: 20200713
  Serious: Yes (Death)
  Sender: FDA-Public Use
  Company Number: JP-KYOWAKIRIN-2019AKK017445

PATIENT

DRUGS (1)
  1. POTELIGEO [Suspect]
     Active Substance: MOGAMULIZUMAB-KPKC
     Indication: ADULT T-CELL LYMPHOMA/LEUKAEMIA
     Dosage: UNK UNK, 1X/MONTH
     Route: 041
     Dates: start: 20150706, end: 20151015

REACTIONS (4)
  - Graft versus host disease [Fatal]
  - Cytomegalovirus enterocolitis [Fatal]
  - Graft versus host disease in gastrointestinal tract [Fatal]
  - Cytomegalovirus infection [Fatal]

NARRATIVE: CASE EVENT DATE: 20160208
